FAERS Safety Report 5779510-0 (Version None)
Quarter: 2008Q2

REPORT INFORMATION
  Report Type: 
  Country: None (occurrence: None)
  Receive Date: 20080619
  Receipt Date: 20080609
  Transmission Date: 20081010
  Serious: Yes (Death, Life-Threatening, Hospitalization, Other)
  Sender: FDA-Public Use
  Company Number: JP-PFIZER INC-2007075396

PATIENT
  Sex: Female

DRUGS (15)
  1. NORVASC [Suspect]
     Indication: HYPERTENSION
     Route: 048
     Dates: start: 20070808, end: 20070821
  2. PRODIF [Suspect]
     Indication: INTERSTITIAL LUNG DISEASE
     Route: 042
     Dates: start: 20070723, end: 20070804
  3. BIAPENEM [Suspect]
     Indication: INTERSTITIAL LUNG DISEASE
     Route: 042
     Dates: start: 20070723, end: 20070804
  4. LANSOPRAZOLE [Suspect]
     Indication: GASTRIC ULCER
     Route: 042
     Dates: start: 20070723, end: 20070803
  5. LANSOPRAZOLE [Suspect]
     Route: 048
     Dates: start: 20070804, end: 20070821
  6. DORMICUM FOR INJECTION [Suspect]
     Indication: SEDATION
     Route: 042
     Dates: start: 20070723, end: 20070728
  7. VOLTAREN [Suspect]
     Indication: PYREXIA
     Dosage: DAILY DOSE:25MG-FREQ:PRN
     Route: 054
     Dates: start: 20070723, end: 20070805
  8. SULFAMETHOXAZOLE AND TRIMETHOPRIM [Suspect]
     Indication: INTERSTITIAL LUNG DISEASE
     Route: 048
     Dates: start: 20070725, end: 20070801
  9. LEVOFLOXACIN [Suspect]
     Route: 048
     Dates: start: 20070808, end: 20070812
  10. APRESOLINE [Suspect]
     Indication: HYPERTENSION
     Route: 048
     Dates: start: 20070730, end: 20070807
  11. OLMETEC [Suspect]
     Indication: HYPERTENSION
     Route: 048
     Dates: start: 20070808, end: 20070821
  12. PENTAZOCINE LACTATE [Suspect]
     Indication: SEDATION
     Route: 042
     Dates: start: 20070723, end: 20070728
  13. ELASPOL [Suspect]
  14. PREDONINE [Suspect]
     Dosage: DAILY DOSE:40MG
     Route: 048
  15. FLUMETHOLON [Concomitant]
     Dosage: DAILY DOSE:125MG

REACTIONS (2)
  - GASTROINTESTINAL INFECTION [None]
  - TOXIC EPIDERMAL NECROLYSIS [None]
